FAERS Safety Report 16210703 (Version 2)
Quarter: 2019Q2

REPORT INFORMATION
  Report Type: Report from Study
  Country: None (occurrence: US)
  Receive Date: 20190418
  Receipt Date: 20190614
  Transmission Date: 20190711
  Serious: Yes (Hospitalization, Other)
  Sender: FDA-Public Use
  Company Number: US-ABBVIE-19S-163-2746487-00

PATIENT
  Age: 57 Year
  Sex: Male
  Weight: 113.95 kg

DRUGS (1)
  1. LUPRON [Suspect]
     Active Substance: LEUPROLIDE ACETATE
     Indication: PRODUCT USED FOR UNKNOWN INDICATION
     Route: 065

REACTIONS (3)
  - Prostate cancer [Unknown]
  - Prostate cancer metastatic [Unknown]
  - Prostatic operation [Unknown]

NARRATIVE: CASE EVENT DATE: 20150325
